FAERS Safety Report 13121123 (Version 2)
Quarter: 2017Q1

REPORT INFORMATION
  Report Type: Spontaneous
  Country: FR (occurrence: FR)
  Receive Date: 20170117
  Receipt Date: 20170131
  Transmission Date: 20170428
  Serious: Yes (Other)
  Sender: FDA-Public Use
  Company Number: FR-JNJFOC-20170110143

PATIENT
  Age: 81 Year
  Sex: Male

DRUGS (5)
  1. SIFROL [Concomitant]
     Active Substance: PRAMIPEXOLE
     Route: 065
  2. LAMALINE [Concomitant]
     Active Substance: ACETAMINOPHEN\CAFFEINE\OPIUM
  3. ZYTIGA [Suspect]
     Active Substance: ABIRATERONE ACETATE
     Indication: PROSTATE CANCER
     Route: 048
     Dates: start: 20161007
  4. ENANTONE LP [Concomitant]
     Active Substance: LEUPROLIDE ACETATE
     Route: 065
  5. CORTANCYL [Suspect]
     Active Substance: PREDNISONE
     Indication: PROSTATE CANCER
     Route: 065
     Dates: start: 20161007

REACTIONS (2)
  - Sleep disorder [Recovered/Resolved]
  - Hypoacusis [Unknown]

NARRATIVE: CASE EVENT DATE: 201612
